FAERS Safety Report 10477191 (Version 2)
Quarter: 2014Q4

REPORT INFORMATION
  Report Type: Spontaneous
  Country: US (occurrence: US)
  Receive Date: 20140926
  Receipt Date: 20141013
  Transmission Date: 20150528
  Serious: Yes (Death, Hospitalization)
  Sender: FDA-Public Use
  Company Number: US-UNITED THERAPEUTICS-UNT-2014-007843

PATIENT
  Sex: Female
  Weight: 4.49 kg

DRUGS (1)
  1. REMODULIN [Suspect]
     Active Substance: TREPROSTINIL
     Indication: COR PULMONALE CHRONIC
     Dosage: 0.054 ?G/KG, CONTINUING
     Route: 058
     Dates: start: 20140324, end: 20140915

REACTIONS (6)
  - Hypotension [Unknown]
  - Irritability [Unknown]
  - Heart disease congenital [Unknown]
  - Oxygen saturation decreased [Unknown]
  - Death [Fatal]
  - Pyrexia [Unknown]

NARRATIVE: CASE EVENT DATE: 2014
